FAERS Safety Report 13621080 (Version 4)
Quarter: 2022Q2

REPORT INFORMATION
  Report Type: Spontaneous
  Country: JP (occurrence: JP)
  Receive Date: 20170607
  Receipt Date: 20220510
  Transmission Date: 20220721
  Serious: Yes (Death, Hospitalization, Other)
  Sender: FDA-Public Use
  Company Number: JP-ASTELLAS-2017JP009526AA

PATIENT
  Age: 76 Year
  Sex: Male
  Weight: 40 kg

DRUGS (18)
  1. PROGRAF [Suspect]
     Active Substance: TACROLIMUS
     Indication: Behcet^s syndrome
     Dosage: 0.5 MG, ONCE DAILY
     Route: 048
     Dates: start: 20170518, end: 20170524
  2. PROGRAF [Suspect]
     Active Substance: TACROLIMUS
     Route: 048
     Dates: start: 20170525, end: 20170531
  3. CIMZIA [Suspect]
     Active Substance: CERTOLIZUMAB PEGOL
     Indication: Behcet^s syndrome
     Route: 058
     Dates: start: 20170522, end: 20170522
  4. HUMIRA [Concomitant]
     Active Substance: ADALIMUMAB
     Indication: Behcet^s syndrome
     Route: 058
     Dates: start: 201605, end: 20161227
  5. HUMIRA [Concomitant]
     Active Substance: ADALIMUMAB
     Route: 058
     Dates: start: 20170517, end: 20170517
  6. REMICADE [Concomitant]
     Active Substance: INFLIXIMAB
     Indication: Behcet^s syndrome
     Route: 042
     Dates: start: 20170117, end: 20170117
  7. DEXAMETHASONE [Concomitant]
     Active Substance: DEXAMETHASONE
     Indication: Product used for unknown indication
     Dosage: 2.5 MG/DAY (3 DAYS), UNKNOWN FREQ.
     Route: 065
     Dates: start: 20170502
  8. CYMBALTA [Concomitant]
     Active Substance: DULOXETINE HYDROCHLORIDE
     Indication: Behcet^s syndrome
     Route: 048
     Dates: start: 20170504, end: 20170525
  9. PREDONINE [Concomitant]
     Active Substance: PREDNISOLONE
     Indication: Behcet^s syndrome
     Route: 042
     Dates: start: 20170517, end: 20170603
  10. BETAMETHASONE\DEXCHLORPHENIRAMINE MALEATE [Concomitant]
     Active Substance: BETAMETHASONE\DEXCHLORPHENIRAMINE MALEATE
     Indication: Behcet^s syndrome
     Dosage: 2 TABLETS, TWICE DAILY
     Route: 048
     Dates: start: 20170522, end: 20170603
  11. HEPARIN SODIUM [Concomitant]
     Active Substance: HEPARIN SODIUM
     Indication: Product used for unknown indication
     Dosage: 14,000 U/DAY, UNKNOWN FREQ.
     Route: 065
  12. DORIPENEMUM [Concomitant]
     Indication: Product used for unknown indication
     Dosage: UNK UNK, UNKNOWN FREQ.
     Route: 065
  13. TEICOPLANIN [Concomitant]
     Active Substance: TEICOPLANIN
     Indication: Product used for unknown indication
     Dosage: UNK UNK, UNKNOWN FREQ.
     Route: 065
  14. CASPOFUNGIN ACETATE [Concomitant]
     Active Substance: CASPOFUNGIN ACETATE
     Indication: Product used for unknown indication
     Dosage: UNK UNK, UNKNOWN FREQ.
     Route: 065
  15. LEVOFLOXACIN HEMIHYDRATE [Concomitant]
     Active Substance: LEVOFLOXACIN
     Indication: Product used for unknown indication
     Dosage: UNK UNK, UNKNOWN FREQ.
     Route: 065
  16. APIXABAN [Concomitant]
     Active Substance: APIXABAN
     Indication: Product used for unknown indication
     Route: 065
  17. APIXABAN [Concomitant]
     Active Substance: APIXABAN
     Route: 065
  18. MIZORIBINE [Concomitant]
     Active Substance: MIZORIBINE
     Indication: Product used for unknown indication
     Route: 065

REACTIONS (4)
  - Renal infarct [Fatal]
  - Pyrexia [Recovering/Resolving]
  - Renal failure [Fatal]
  - Off label use [Unknown]

NARRATIVE: CASE EVENT DATE: 20170518
